FAERS Safety Report 5342064-7 (Version None)
Quarter: 2007Q2

REPORT INFORMATION
  Report Type: 
  Country: None (occurrence: None)
  Receive Date: 20070601
  Receipt Date: 20070529
  Transmission Date: 20071010
  Serious: Yes (Other)
  Sender: FDA-Public Use
  Company Number: CA-JNJFOC-20070505729

PATIENT
  Sex: Female

DRUGS (3)
  1. TRAMACET [Suspect]
     Indication: RADICULAR PAIN
     Dosage: INTERMITTENT USE
     Route: 048
  2. CELEBREX [Suspect]
     Indication: DRUG USE FOR UNKNOWN INDICATION
     Route: 065
  3. ALDACTONE [Concomitant]
     Dosage: TAKEN FOR MANY YEARS
     Route: 065

REACTIONS (3)
  - RENAL IMPAIRMENT [None]
  - RENAL PAIN [None]
  - URINARY RETENTION [None]
